FAERS Safety Report 7020507-0 (Version None)
Quarter: 2010Q3

REPORT INFORMATION
  Report Type: 
  Country: None (occurrence: None)
  Receive Date: 20100929
  Receipt Date: 20100921
  Transmission Date: 20110219
  Serious: Yes (Hospitalization)
  Sender: FDA-Public Use
  Company Number: BR-ROCHE-729133

PATIENT
  Sex: Female
  Weight: 78 kg

DRUGS (1)
  1. PEGINTERFERON ALFA-2A [Suspect]
     Indication: HEPATITIS C
     Route: 058
     Dates: start: 20091211

REACTIONS (2)
  - ANAEMIA [None]
  - UTERINE DISORDER [None]
